FAERS Safety Report 15235129 (Version 1)
Quarter: 2018Q3

REPORT INFORMATION
  Report Type: Spontaneous
  Country: GB (occurrence: GB)
  Receive Date: 20180803
  Receipt Date: 20180803
  Transmission Date: 20181010
  Serious: No
  Sender: FDA-Public Use
  Company Number: GB-ALKEM LABORATORIES LIMITED-GB-ALKEM-2018-02209

PATIENT
  Age: 78 Year
  Sex: Male
  Weight: 102 kg

DRUGS (8)
  1. OMEPRAZOLE. [Concomitant]
     Active Substance: OMEPRAZOLE
     Indication: ILL-DEFINED DISORDER
     Dosage: TAKE ONE DAILY ()
     Route: 065
     Dates: start: 20180201
  2. DOUBLEBASE [Concomitant]
     Active Substance: ISOPROPYL MYRISTATE\PARAFFIN
     Indication: ILL-DEFINED DISORDER
     Dosage: USE ON LEGS AND DRY SKIN ON ELBOWS, HEELS AS...
     Route: 065
     Dates: start: 20171117, end: 20171117
  3. APIXABAN [Concomitant]
     Active Substance: APIXABAN
     Indication: ILL-DEFINED DISORDER
     Dosage: TAKE ONE TWICE DAILY ()
     Route: 065
     Dates: start: 20170626
  4. FUROSEMIDE. [Concomitant]
     Active Substance: FUROSEMIDE
     Indication: ILL-DEFINED DISORDER
     Dosage: TAKE ONE EACH MORNING ()
     Route: 065
     Dates: start: 20170626
  5. CEFUROXIME AXETIL. [Suspect]
     Active Substance: CEFUROXIME AXETIL
     Indication: PRODUCT USED FOR UNKNOWN INDICATION
     Dosage: UNK
     Route: 065
     Dates: start: 20180201
  6. BISOPROLOL [Concomitant]
     Active Substance: BISOPROLOL
     Indication: ILL-DEFINED DISORDER
     Dosage: TAKE ONE DAILY ()
     Route: 065
     Dates: start: 20170626
  7. NAPAROXEN [Concomitant]
     Indication: ILL-DEFINED DISORDER
     Dosage: TAKE ONE TWICE DAILY ()
     Route: 065
     Dates: start: 20170925
  8. COCODAMOL [Concomitant]
     Active Substance: ACETAMINOPHEN\CODEINE PHOSPHATE
     Indication: ILL-DEFINED DISORDER
     Dosage: 2 TABLETS FOUR TIMES DAILY ()
     Dates: start: 20170626

REACTIONS (1)
  - Rash [Recovered/Resolved]

NARRATIVE: CASE EVENT DATE: 20180201
